FAERS Safety Report 20874191 (Version 1)
Quarter: 2022Q2

REPORT INFORMATION
  Report Type: Spontaneous
  Country: CN (occurrence: CN)
  Receive Date: 20220525
  Receipt Date: 20220525
  Transmission Date: 20220721
  Serious: Yes (Other)
  Sender: FDA-Public Use
  Company Number: CN-PFIZER INC-202200743998

PATIENT
  Age: 33 Year
  Sex: Female

DRUGS (2)
  1. VFEND [Suspect]
     Active Substance: VORICONAZOLE
     Indication: Infection
     Dosage: 400 MG, 2X/DAY
     Route: 041
     Dates: start: 20220420, end: 20220429
  2. LINEZOLID [Concomitant]
     Active Substance: LINEZOLID
     Indication: Pneumonia
     Dosage: 0.6 G, 2X/DAY
     Route: 041
     Dates: start: 20220420, end: 20220429

REACTIONS (2)
  - Hallucination, auditory [Unknown]
  - Halo vision [Unknown]

NARRATIVE: CASE EVENT DATE: 20220422
